FAERS Safety Report 9729839 (Version 1)
Quarter: 2013Q4

REPORT INFORMATION
  Report Type: Spontaneous
  Country: US (occurrence: CA)
  Receive Date: 20131204
  Receipt Date: 20131204
  Transmission Date: 20140711
  Serious: Yes (Hospitalization)
  Sender: FDA-Public Use
  Company Number: CA-FRI-1000051827

PATIENT
  Age: 83 Year
  Sex: Male

DRUGS (1)
  1. ROFLUMILAST [Suspect]
     Dosage: 1 DF
     Route: 048
     Dates: start: 20121007

REACTIONS (2)
  - Fall [Unknown]
  - Hypotension [Unknown]
